FAERS Safety Report 17213203 (Version 1)
Quarter: 2019Q4

REPORT INFORMATION
  Report Type: Spontaneous
  Country: US (occurrence: US)
  Receive Date: 20191230
  Receipt Date: 20191230
  Transmission Date: 20200122
  Serious: Yes (Hospitalization, Other)
  Sender: FDA-Public Use
  Company Number: US-ACCORD-165160

PATIENT
  Age: 81 Year
  Sex: Female

DRUGS (1)
  1. CAPECITABINE. [Suspect]
     Active Substance: CAPECITABINE
     Indication: RECTAL ADENOCARCINOMA
     Route: 048

REACTIONS (5)
  - Hypoalbuminaemia [Unknown]
  - Cryptitis [Recovered/Resolved]
  - Hypokalaemia [Unknown]
  - Diarrhoea [Recovered/Resolved]
  - Hypocalcaemia [Unknown]
